FAERS Safety Report 6595310-6 (Version None)
Quarter: 2010Q1

REPORT INFORMATION
  Report Type: 
  Country: None (occurrence: None)
  Receive Date: 20100219
  Receipt Date: 20100219
  Transmission Date: 20100710
  Serious: Yes (Life-Threatening, Hospitalization)
  Sender: FDA-Public Use
  Company Number: None

PATIENT
  Age: 66 Year
  Sex: Female

DRUGS (4)
  1. ENALAPRIL MALEATE [Suspect]
     Indication: HYPERTENSION
     Dosage: UNKNOWN UNKNOWN PO
     Route: 048
  2. CLOPIDOGREL [Concomitant]
  3. AMLODIPINE [Concomitant]
  4. ATORVASTATIN CALCIUM [Concomitant]

REACTIONS (5)
  - ANGIOEDEMA [None]
  - NO THERAPEUTIC RESPONSE [None]
  - PAIN [None]
  - STRIDOR [None]
  - SWELLING [None]
